FAERS Safety Report 8616138-9 (Version None)
Quarter: 2012Q3

REPORT INFORMATION
  Report Type: 
  Country: None (occurrence: None)
  Receive Date: 20120815
  Receipt Date: 20120815
  Transmission Date: 20120928
  Serious: Yes (Life-Threatening)
  Sender: FDA-Public Use
  Company Number: None

PATIENT
  Age: 71 Year
  Sex: Female
  Weight: 52.6173 kg

DRUGS (11)
  1. HYDROCHLOROTHIAZIDE 25MG [Suspect]
     Dosage: 25MG ONCE DAILY PO
     Route: 048
  2. ESOMEPRAZOLE SODIUM [Concomitant]
  3. IPRATROPIUM BROMIDE AND ALBUTEROL SULFATE [Concomitant]
  4. AMLODIPINE [Concomitant]
  5. METOPROLOL SUCCINATE [Concomitant]
  6. MOEXIPRIL/HYDROCHLOROTHIAZIDE [Concomitant]
  7. SODIUM CHLORIDE [Concomitant]
  8. LEVOFLOXACIN [Concomitant]
  9. SIMVASTATIN [Concomitant]
  10. ENOXAPARIN SODIUM [Concomitant]
  11. ONDANSETRON [Concomitant]

REACTIONS (7)
  - HYPONATRAEMIA [None]
  - NAUSEA [None]
  - HYPOKALAEMIA [None]
  - MENTAL STATUS CHANGES [None]
  - COMMUNICATION DISORDER [None]
  - CONFUSIONAL STATE [None]
  - VOMITING [None]
